FAERS Safety Report 18726303 (Version 1)
Quarter: 2021Q1

REPORT INFORMATION
  Report Type: Report from Study
  Country: None (occurrence: US)
  Receive Date: 20210111
  Receipt Date: 20210111
  Transmission Date: 20210419
  Serious: Yes (Other)
  Sender: FDA-Public Use
  Company Number: US-ABBVIE-20K-163-3663684-00

PATIENT
  Sex: Female
  Weight: 93.98 kg

DRUGS (3)
  1. HUMIRA [Suspect]
     Active Substance: ADALIMUMAB
     Indication: COLITIS ULCERATIVE
     Route: 058
     Dates: start: 2015, end: 2016
  2. METHOTREXATE. [Concomitant]
     Active Substance: METHOTREXATE
     Indication: RHEUMATOID ARTHRITIS
  3. HUMIRA [Suspect]
     Active Substance: ADALIMUMAB
     Indication: COLITIS ULCERATIVE
     Dosage: CITRATE FREE
     Route: 058
     Dates: start: 2016

REACTIONS (13)
  - Peripheral venous disease [Recovering/Resolving]
  - Eosinophil count increased [Not Recovered/Not Resolved]
  - Impaired healing [Recovering/Resolving]
  - Memory impairment [Not Recovered/Not Resolved]
  - Influenza [Recovered/Resolved]
  - COVID-19 [Recovered/Resolved]
  - Venous injury [Unknown]
  - Pancreatic disorder [Recovering/Resolving]
  - Blood glucose increased [Recovering/Resolving]
  - Vascular pain [Recovering/Resolving]
  - Muscular weakness [Recovered/Resolved]
  - Contusion [Recovered/Resolved]
  - Pain in extremity [Recovered/Resolved]

NARRATIVE: CASE EVENT DATE: 2015
